FAERS Safety Report 4716034-3 (Version None)
Quarter: 2005Q3

REPORT INFORMATION
  Report Type: 
  Country: None (occurrence: None)
  Receive Date: 20050718
  Receipt Date: 20050711
  Transmission Date: 20060218
  Serious: Yes (Other)
  Sender: FDA-Public Use
  Company Number: 200516371GDDC

PATIENT
  Age: 23 Year
  Sex: Female
  Weight: 60 kg

DRUGS (1)
  1. METRONIDAZOLE [Suspect]
     Indication: VAGINITIS BACTERIAL
     Route: 048
     Dates: start: 20050606, end: 20050606

REACTIONS (4)
  - DIZZINESS [None]
  - HOT FLUSH [None]
  - NAUSEA [None]
  - SWELLING FACE [None]
